FAERS Safety Report 10763989 (Version 5)
Quarter: 2015Q2

REPORT INFORMATION
  Report Type: Spontaneous
  Country: US (occurrence: US)
  Receive Date: 20150204
  Receipt Date: 20150515
  Transmission Date: 20150821
  Serious: Yes (Death, Other)
  Sender: FDA-Public Use
  Company Number: US-GLAXOSMITHKLINE-US2014GSK049259

PATIENT
  Sex: Male

DRUGS (1)
  1. PROMACTA [Suspect]
     Active Substance: ELTROMBOPAG OLAMINE
     Indication: PLATELET DISORDER
     Dosage: 50 MG, U
     Dates: start: 201411

REACTIONS (5)
  - Death [Fatal]
  - Weight decreased [Unknown]
  - Fatigue [Unknown]
  - Platelet count decreased [Unknown]
  - Decreased appetite [Unknown]
